FAERS Safety Report 25318804 (Version 2)
Quarter: 2025Q2

REPORT INFORMATION
  Report Type: Report from Study
  Country: US (occurrence: US)
  Receive Date: 20250515
  Receipt Date: 20250609
  Transmission Date: 20250717
  Serious: Yes (Hospitalization)
  Sender: PFIZER
  Company Number: US-PFIZER INC-PV202500056664

PATIENT
  Age: 65 Year
  Sex: Female
  Weight: 67.1 kg

DRUGS (4)
  1. GEMCITABINE HYDROCHLORIDE [Suspect]
     Active Substance: GEMCITABINE HYDROCHLORIDE
     Dates: start: 20250401
  2. ABRAXANE [Suspect]
     Active Substance: PACLITAXEL
     Dates: start: 20250401
  3. INCB-161734 HYDROCHLORIDE DIHYDRATE [Suspect]
     Active Substance: INCB-161734 HYDROCHLORIDE DIHYDRATE
     Indication: Ductal adenocarcinoma of pancreas
     Dosage: 1000 MG, 1X/DAY, TABLET
     Route: 048
     Dates: start: 20241008, end: 20250223
  4. INCB-161734 HYDROCHLORIDE DIHYDRATE [Suspect]
     Active Substance: INCB-161734 HYDROCHLORIDE DIHYDRATE
     Dosage: 600 MG, 2X/DAY, TABLET
     Route: 048
     Dates: start: 20250224, end: 20250323

REACTIONS (1)
  - Lipase increased [Recovered/Resolved]

NARRATIVE: CASE EVENT DATE: 20250401
